FAERS Safety Report 18549155 (Version 1)
Quarter: 2020Q4

REPORT INFORMATION
  Report Type: Spontaneous
  Country: US (occurrence: US)
  Receive Date: 20201126
  Receipt Date: 20201126
  Transmission Date: 20210114
  Serious: Yes (Other)
  Sender: FDA-Public Use
  Company Number: US-SA-2020SA332264

PATIENT

DRUGS (1)
  1. FERRLECIT [Suspect]
     Active Substance: SODIUM FERRIC GLUCONATE COMPLEX
     Dosage: 125 MG
     Route: 042
     Dates: start: 20201118, end: 20201118

REACTIONS (8)
  - Glossodynia [Unknown]
  - Paraesthesia oral [Unknown]
  - Nausea [Unknown]
  - Vomiting [Unknown]
  - Anaphylactic reaction [Unknown]
  - Oropharyngeal pain [Unknown]
  - Paraesthesia [Unknown]
  - Pharyngeal paraesthesia [Unknown]

NARRATIVE: CASE EVENT DATE: 20201118
